FAERS Safety Report 8762303 (Version 1)
Quarter: 2012Q4

REPORT INFORMATION
  Report Type: 
  Country: DK (occurrence: DK)
  Receive Date: 20120829
  Receipt Date: 20120829
  Transmission Date: 20130627
  Serious: Yes (Hospitalization, Other)
  Sender: FDA-Public Use
  Company Number: DK-PFIZER INC-2012208197

PATIENT
  Age: 38 Year
  Sex: Male

DRUGS (2)
  1. LYRICA [Suspect]
     Indication: NEURALGIA
     Dosage: 8.5 g, 1x/day
     Route: 048
  2. METHADONE [Concomitant]

REACTIONS (3)
  - Drug abuse [Unknown]
  - Suicidal ideation [Unknown]
  - Hallucinations, mixed [Unknown]
